FAERS Safety Report 12578114 (Version 1)
Quarter: 2016Q3

REPORT INFORMATION
  Report Type: Spontaneous
  Country: GB (occurrence: GB)
  Receive Date: 20160721
  Receipt Date: 20160721
  Transmission Date: 20161109
  Serious: Yes (Other)
  Sender: FDA-Public Use
  Company Number: GB-ROCHE-1798544

PATIENT
  Sex: Female

DRUGS (2)
  1. DECAPEPTYL (TRIPTORELIN PAMOATE) [Suspect]
     Active Substance: TRIPTORELIN PAMOATE
     Indication: PRODUCT USED FOR UNKNOWN INDICATION
     Dosage: DECAPEPTYL SR
     Route: 065
  2. HERCEPTIN [Suspect]
     Active Substance: TRASTUZUMAB
     Indication: PRODUCT USED FOR UNKNOWN INDICATION
     Dosage: 600 MG, UNK
     Route: 058

REACTIONS (14)
  - Insomnia [Unknown]
  - Erythema [Unknown]
  - Pain [Unknown]
  - Asthenia [Recovering/Resolving]
  - Fatigue [Unknown]
  - Neuropathy peripheral [Recovering/Resolving]
  - Back pain [Unknown]
  - Vomiting [Unknown]
  - Breast pain [Unknown]
  - Nausea [Unknown]
  - Diarrhoea [Unknown]
  - Malaise [Unknown]
  - Pain of skin [Unknown]
  - Micturition disorder [Unknown]
